FAERS Safety Report 10516587 (Version 1)
Quarter: 2014Q4

REPORT INFORMATION
  Report Type: Spontaneous
  Country: US (occurrence: US)
  Receive Date: 20141014
  Receipt Date: 20141014
  Transmission Date: 20150528
  Serious: No
  Sender: FDA-Public Use
  Company Number: US-TARO-2013P1021415

PATIENT
  Age: 8 Year
  Sex: Male
  Weight: 29.48 kg

DRUGS (2)
  1. LORATADINE SYRUP (LORATADINE ORAL SOLUTION USP) 5MG/5ML [Suspect]
     Active Substance: LORATADINE
     Route: 048
     Dates: start: 20131118, end: 20131118
  2. ALLERGY RELIEF TABLET (CETIRIZINE HCL) CHEWABLE 10 MG BY SANDOZ [Concomitant]

REACTIONS (2)
  - Somnolence [Recovered/Resolved]
  - Underdose [Unknown]

NARRATIVE: CASE EVENT DATE: 20131118
